FAERS Safety Report 6272797-X (Version None)
Quarter: 2009Q3

REPORT INFORMATION
  Report Type: 
  Country: None (occurrence: None)
  Receive Date: 20090717
  Receipt Date: 20090714
  Transmission Date: 20100115
  Serious: Yes (Other)
  Sender: FDA-Public Use
  Company Number: IT-AMGEN-US356191

PATIENT
  Age: 13 Year
  Sex: Female

DRUGS (3)
  1. ENBREL [Suspect]
     Indication: BEHCET'S SYNDROME
     Route: 065
  2. ENBREL [Suspect]
  3. PREDNISONE [Concomitant]
     Dosage: LOW DOSAGE, GRADUALLY TAPERED OFF UP TO SUSPENSION (2ND MONTH); EVENTUALLY SUSPENDED
     Route: 065

REACTIONS (2)
  - ENDOCARDITIS BACTERIAL [None]
  - STAPHYLOCOCCAL INFECTION [None]
